FAERS Safety Report 6470947-3 (Version None)
Quarter: 2009Q4

REPORT INFORMATION
  Report Type: 
  Country: None (occurrence: None)
  Receive Date: 20091203
  Receipt Date: 20080125
  Transmission Date: 20100525
  Serious: Yes (Hospitalization)
  Sender: FDA-Public Use
  Company Number: US-ELI_LILLY_AND_COMPANY-US200801005575

PATIENT
  Sex: Female
  Weight: 96.145 kg

DRUGS (13)
  1. BYETTA [Suspect]
     Indication: TYPE 2 DIABETES MELLITUS
     Dosage: 5 UG, 2/D
     Route: 058
     Dates: start: 20050101, end: 20050101
  2. BYETTA [Suspect]
     Dosage: 10 UG, 2/D
     Route: 058
     Dates: start: 20050101, end: 20061101
  3. BYETTA [Suspect]
     Dosage: 10 UG, 2/D
     Route: 058
     Dates: start: 20060101
  4. GLUCOPHAGE [Concomitant]
     Indication: DIABETES MELLITUS
     Dosage: 850 MG, 2/D
     Route: 048
  5. CARDIAZEM [Concomitant]
     Indication: HYPERTENSION
     Dosage: 240 MG, DAILY (1/D)
     Route: 048
  6. LISINOPRIL [Concomitant]
     Indication: HYPERTENSION
     Dosage: 10 MG, DAILY (1/D)
     Route: 048
  7. SYNTHROID [Concomitant]
     Indication: HYPOTHYROIDISM
     Dosage: 100 UG, DAILY (1/D)
     Route: 048
  8. TOFRANIL [Concomitant]
     Dosage: 50 MG, DAILY (1/D)
     Route: 048
  9. XANAX [Concomitant]
     Dosage: 0.25 MG, DAILY (1/D)
     Route: 048
  10. CALCIUM D [Concomitant]
     Dosage: UNK, DAILY (1/D)
     Route: 048
  11. ASCORBIC ACID [Concomitant]
     Dosage: UNK, DAILY (1/D)
     Route: 048
  12. CENTRUM SILVER [Concomitant]
     Dosage: UNK, DAILY (1/D)
     Route: 048
  13. FLAXSEED OIL [Concomitant]
     Dosage: UNK, DAILY (1/D)

REACTIONS (5)
  - COUGH [None]
  - INJECTION SITE IRRITATION [None]
  - LUNG SQUAMOUS CELL CARCINOMA STAGE UNSPECIFIED [None]
  - PULMONARY MASS [None]
  - SNEEZING [None]
